FAERS Safety Report 7246817-X (Version None)
Quarter: 2011Q1

REPORT INFORMATION
  Report Type: 
  Country: None (occurrence: None)
  Receive Date: 20110127
  Receipt Date: 20110118
  Transmission Date: 20110831
  Serious: Yes (Hospitalization)
  Sender: FDA-Public Use
  Company Number: JP-AMGEN-JPNCT2010010637

PATIENT
  Age: 76 Year
  Sex: Male
  Weight: 69 kg

DRUGS (8)
  1. PANITUMUMAB [Suspect]
     Indication: COLORECTAL CANCER
     Dosage: 4.3 MG/KG, Q2WK
     Route: 041
     Dates: start: 20100906, end: 20100906
  2. FLUOROURACIL [Concomitant]
     Indication: COLORECTAL CANCER
     Route: 040
     Dates: start: 20100906, end: 20100906
  3. CORTICOSTEROIDS [Concomitant]
     Indication: PROPHYLAXIS
     Dosage: UNK
     Route: 065
  4. DECADRON [Concomitant]
     Dosage: UNK
     Route: 042
  5. IRINOTECAN HYDROCHLORIDE [Concomitant]
     Indication: COLORECTAL CANCER
     Route: 041
     Dates: start: 20100906, end: 20100906
  6. ALOXI [Concomitant]
     Dosage: UNK
     Route: 042
  7. FLUOROURACIL [Concomitant]
     Route: 041
     Dates: start: 20100906, end: 20100906
  8. CALCIUM LEVOFOLINATE [Concomitant]
     Indication: COLORECTAL CANCER
     Route: 041
     Dates: start: 20100906, end: 20100906

REACTIONS (2)
  - NAUSEA [None]
  - LOSS OF CONSCIOUSNESS [None]
